FAERS Safety Report 24904781 (Version 3)
Quarter: 2025Q1

REPORT INFORMATION
  Report Type: Report from Study
  Country: CN (occurrence: CN)
  Receive Date: 20250130
  Receipt Date: 20250211
  Transmission Date: 20250409
  Serious: Yes (Other)
  Sender: ROCHE
  Company Number: CN-ROCHE-10000193283

PATIENT
  Age: 65 Year
  Sex: Female
  Weight: 44 kg

DRUGS (46)
  1. POLATUZUMAB VEDOTIN [Suspect]
     Active Substance: POLATUZUMAB VEDOTIN
     Indication: Diffuse large B-cell lymphoma
     Dosage: ON 19-OCT-2024, SHE RECEIVED MOST RECENT DOSE OF POLATUZUMAB PRIOR TO AE.
     Route: 042
     Dates: start: 20240926, end: 20240926
  2. RITUXIMAB [Suspect]
     Active Substance: RITUXIMAB
     Indication: Diffuse large B-cell lymphoma
     Dosage: ON 19-OCT-2024, SHE RECEIVED HER MOST RECENT DOSE OF RITUXIMAB PRIOR TO AE.
     Route: 042
     Dates: start: 20240926, end: 20240926
  3. RITUXIMAB [Suspect]
     Active Substance: RITUXIMAB
     Route: 042
     Dates: start: 20241225, end: 20241225
  4. CYCLOPHOSPHAMIDE [Suspect]
     Active Substance: CYCLOPHOSPHAMIDE
     Indication: Diffuse large B-cell lymphoma
     Dosage: ON 20-OCT-2024, SHE RECEIVED MOST RECENT DOSE OF CYCLOPHOSPHAMIDE PRIOR TO AE.
     Route: 042
     Dates: start: 20240927, end: 20240927
  5. DOXORUBICIN [Suspect]
     Active Substance: DOXORUBICIN
     Indication: Diffuse large B-cell lymphoma
     Dosage: ON 20-OCT-2024, SHE RECEIVED MOST RECENT DOSE OF DOXORUBICIN PRIOR TO AE.
     Route: 042
     Dates: start: 20240927, end: 20240927
  6. DEXAMETHASONE [Suspect]
     Active Substance: DEXAMETHASONE
     Indication: Diffuse large B-cell lymphoma
     Route: 042
     Dates: start: 20240927, end: 20240927
  7. DEXAMETHASONE [Suspect]
     Active Substance: DEXAMETHASONE
     Dosage: ON 20-OCT-2024, SHE RECEIVED MOST RECENT DOSE OF DEXAMETHASONE PRIOR TO AE.
     Route: 048
     Dates: start: 20241221, end: 20241224
  8. DEXAMETHASONE [Suspect]
     Active Substance: DEXAMETHASONE
     Route: 048
     Dates: start: 20241112, end: 20241115
  9. DEXAMETHASONE [Suspect]
     Active Substance: DEXAMETHASONE
     Dosage: ON 20-OCT-2024, SHE RECEIVED MOST RECENT DOSE OF DEXAMETHASONE PRIOR TO AE.
     Route: 048
     Dates: start: 20241205, end: 20241208
  10. DEXAMETHASONE [Suspect]
     Active Substance: DEXAMETHASONE
     Route: 042
     Dates: start: 20241226, end: 20241230
  11. DEXAMETHASONE [Suspect]
     Active Substance: DEXAMETHASONE
     Route: 048
     Dates: start: 20241227, end: 20241230
  12. PREDNISONE [Suspect]
     Active Substance: PREDNISONE
     Indication: Diffuse large B-cell lymphoma
     Route: 048
     Dates: start: 20240928, end: 20240930
  13. Potassium chloride extended-release tablets [Concomitant]
     Route: 048
     Dates: start: 20241022, end: 20241030
  14. ACETAMINOPHEN [Concomitant]
     Active Substance: ACETAMINOPHEN
     Route: 048
     Dates: start: 20241110, end: 20241110
  15. ACETAMINOPHEN [Concomitant]
     Active Substance: ACETAMINOPHEN
     Route: 048
     Dates: start: 20241203, end: 20241203
  16. ACETAMINOPHEN [Concomitant]
     Active Substance: ACETAMINOPHEN
     Route: 048
     Dates: start: 20241225, end: 20241225
  17. PROMETHAZINE [Concomitant]
     Active Substance: PROMETHAZINE HYDROCHLORIDE
     Route: 030
     Dates: start: 20241019, end: 20241019
  18. PROMETHAZINE [Concomitant]
     Active Substance: PROMETHAZINE HYDROCHLORIDE
     Route: 030
     Dates: start: 20241110, end: 20241110
  19. PROMETHAZINE [Concomitant]
     Active Substance: PROMETHAZINE HYDROCHLORIDE
     Route: 042
     Dates: start: 20241203, end: 20241203
  20. PROMETHAZINE [Concomitant]
     Active Substance: PROMETHAZINE HYDROCHLORIDE
     Route: 030
     Dates: start: 20241225, end: 20241225
  21. PROMETHAZINE [Concomitant]
     Active Substance: PROMETHAZINE HYDROCHLORIDE
     Route: 030
     Dates: start: 20250117, end: 20250117
  22. Aprepitant injection [Concomitant]
     Route: 042
     Dates: start: 20241111, end: 20241111
  23. Aprepitant injection [Concomitant]
     Route: 042
     Dates: start: 20241204, end: 20241204
  24. Aprepitant injection [Concomitant]
     Route: 042
     Dates: start: 20241226, end: 20241226
  25. Aprepitant injection [Concomitant]
     Route: 042
     Dates: start: 20241020, end: 20241020
  26. MESNA [Concomitant]
     Active Substance: MESNA
     Route: 042
     Dates: start: 20241020, end: 20241020
  27. MESNA [Concomitant]
     Active Substance: MESNA
     Route: 042
     Dates: start: 20241111, end: 20241111
  28. MESNA [Concomitant]
     Active Substance: MESNA
     Route: 042
     Dates: start: 20241204, end: 20241204
  29. MESNA [Concomitant]
     Active Substance: MESNA
     Route: 042
     Dates: start: 20241226, end: 20241226
  30. MESNA [Concomitant]
     Active Substance: MESNA
     Route: 042
     Dates: start: 20250118, end: 20250118
  31. ALPRAZOLAM [Concomitant]
     Active Substance: ALPRAZOLAM
     Route: 048
     Dates: start: 20240924
  32. PANTOPRAZOLE [Concomitant]
     Active Substance: PANTOPRAZOLE
     Route: 042
     Dates: start: 20241018, end: 20241024
  33. ESCITALOPRAM OXALATE [Concomitant]
     Active Substance: ESCITALOPRAM OXALATE
     Route: 048
     Dates: start: 20240924
  34. Hydrotalcite chewable tablets [Concomitant]
     Route: 048
     Dates: start: 20241021
  35. Trimebutine maleate capsules [Concomitant]
     Route: 048
     Dates: start: 20241022
  36. MOSAPRIDE CITRATE [Concomitant]
     Active Substance: MOSAPRIDE CITRATE
     Route: 048
     Dates: start: 20241022
  37. DEXAMETHASONE SODIUM PHOSPHATE [Concomitant]
     Active Substance: DEXAMETHASONE SODIUM PHOSPHATE
     Route: 042
     Dates: start: 20241019, end: 20241019
  38. DEXAMETHASONE SODIUM PHOSPHATE [Concomitant]
     Active Substance: DEXAMETHASONE SODIUM PHOSPHATE
     Route: 042
     Dates: start: 20241110, end: 20241110
  39. DEXAMETHASONE SODIUM PHOSPHATE [Concomitant]
     Active Substance: DEXAMETHASONE SODIUM PHOSPHATE
     Route: 042
     Dates: start: 20241203, end: 20241203
  40. DEXAMETHASONE SODIUM PHOSPHATE [Concomitant]
     Active Substance: DEXAMETHASONE SODIUM PHOSPHATE
     Route: 042
     Dates: start: 20250117, end: 20250117
  41. ACETAMINOPHEN [Concomitant]
     Active Substance: ACETAMINOPHEN
     Route: 048
     Dates: start: 20241019, end: 20241019
  42. ACETAMINOPHEN [Concomitant]
     Active Substance: ACETAMINOPHEN
     Route: 048
     Dates: start: 20241110, end: 20241110
  43. METOCLOPRAMIDE HYDROCHLORIDE [Concomitant]
     Active Substance: METOCLOPRAMIDE HYDROCHLORIDE
     Route: 042
     Dates: start: 20241023, end: 20241023
  44. DEXRAZOXANE [Concomitant]
     Active Substance: DEXRAZOXANE
     Route: 042
     Dates: start: 20250118, end: 20250118
  45. Azasetron hydrochloride injection [Concomitant]
     Route: 042
     Dates: start: 20250118, end: 20250118
  46. LORATADINE [Concomitant]
     Active Substance: LORATADINE
     Route: 048
     Dates: start: 20250117, end: 20250117

REACTIONS (2)
  - Hepatic failure [Not Recovered/Not Resolved]
  - Hepatic function abnormal [Not Recovered/Not Resolved]

NARRATIVE: CASE EVENT DATE: 20241108
